FAERS Safety Report 10998311 (Version 1)
Quarter: 2015Q2

REPORT INFORMATION
  Report Type: Spontaneous
  Country: BR (occurrence: None)
  Receive Date: 20150406
  Receipt Date: 20150406
  Transmission Date: 20150821
  Serious: Yes (Hospitalization, Other)
  Sender: FDA-Public Use
  Company Number: BR2015GSK043089

PATIENT
  Age: 29 Year
  Sex: Male

DRUGS (3)
  1. LAMIVUDINE. [Suspect]
     Active Substance: LAMIVUDINE
     Indication: HIV INFECTION
     Dates: start: 200812
  2. ZIDOVUDINE (ZIDOVUDINE) UNKNOWN) [Suspect]
     Active Substance: ZIDOVUDINE
     Indication: HIV INFECTION
     Dates: start: 200812
  3. EFAVIRENZ (EFAVIRENZ) UNKNOWN [Suspect]
     Active Substance: EFAVIRENZ
     Indication: HIV INFECTION

REACTIONS (9)
  - Inflammation [None]
  - Swelling [None]
  - Lymphadenopathy [None]
  - Mucocutaneous leishmaniasis [None]
  - Skin ulcer [None]
  - Nasal obstruction [None]
  - Immune reconstitution inflammatory syndrome [None]
  - Skin necrosis [None]
  - Myiasis [None]

NARRATIVE: CASE EVENT DATE: 200905
